FAERS Safety Report 6450438-6 (Version None)
Quarter: 2009Q4

REPORT INFORMATION
  Report Type: 
  Country: None (occurrence: None)
  Receive Date: 20091123
  Receipt Date: 20090611
  Transmission Date: 20100525
  Serious: No
  Sender: FDA-Public Use
  Company Number: US-BAYER-200924185NA

PATIENT
  Age: 39 Year
  Sex: Female

DRUGS (2)
  1. MAGNEVIST PHARMACY BULK PACK [Suspect]
     Indication: NUCLEAR MAGNETIC RESONANCE IMAGING BRAIN
     Dosage: TOTAL DAILY DOSE: 6 ML  UNIT DOSE: 100 ML
     Route: 042
     Dates: start: 20090610, end: 20090610
  2. MAGNEVIST PHARMACY BULK PACK [Suspect]

REACTIONS (3)
  - CHOKING SENSATION [None]
  - ERYTHEMA [None]
  - NAUSEA [None]
